FAERS Safety Report 23913423 (Version 4)
Quarter: 2024Q3

REPORT INFORMATION
  Report Type: Spontaneous
  Country: JP (occurrence: JP)
  Receive Date: 20240529
  Receipt Date: 20240911
  Transmission Date: 20241017
  Serious: Yes (Hospitalization, Other)
  Sender: CELLTRION
  Company Number: JP-JPNKAYAKU-2024JPNK038915

PATIENT

DRUGS (2)
  1. BEVACIZUMAB [Suspect]
     Active Substance: BEVACIZUMAB
     Indication: Rectal cancer metastatic
     Dosage: 3RD-LINE TREATMENT IN NOV-20XX-1(DOSE DESC)
     Route: 042
  2. LONSURF [Concomitant]
     Active Substance: TIPIRACIL HYDROCHLORIDE\TRIFLURIDINE
     Indication: Rectal cancer metastatic
     Dosage: UNK
     Route: 065

REACTIONS (3)
  - Pneumothorax [Recovering/Resolving]
  - Neuropathy peripheral [Unknown]
  - Bronchopleural fistula [Recovering/Resolving]
